FAERS Safety Report 24609162 (Version 2)
Quarter: 2025Q1

REPORT INFORMATION
  Report Type: Spontaneous
  Country: CA (occurrence: CA)
  Receive Date: 20241112
  Receipt Date: 20250128
  Transmission Date: 20250408
  Serious: Yes (Hospitalization, Other)
  Sender: SANOFI AVENTIS
  Company Number: CA-SA-2024SA321758

PATIENT
  Age: 82 Year
  Sex: Female

DRUGS (9)
  1. CLOPIDOGREL BISULFATE [Suspect]
     Active Substance: CLOPIDOGREL BISULFATE
     Indication: Product used for unknown indication
     Route: 065
  2. ERELZI [Suspect]
     Active Substance: ETANERCEPT-SZZS
     Indication: Rheumatoid arthritis
     Dosage: 50 MG, QW
     Route: 058
     Dates: start: 20220812
  3. AMBRISENTAN [Suspect]
     Active Substance: AMBRISENTAN
     Indication: Pulmonary arterial hypertension
     Dosage: 5 MG, QD
  4. DESOXIMETASONE [Concomitant]
     Active Substance: DESOXIMETASONE
  5. DESOXIMETASONE [Concomitant]
     Active Substance: DESOXIMETASONE
     Dosage: UNK, BID
  6. DESOXIMETASONE [Concomitant]
     Active Substance: DESOXIMETASONE
  7. DESOXIMETASONE [Concomitant]
     Active Substance: DESOXIMETASONE
  8. DESOXIMETASONE [Concomitant]
     Active Substance: DESOXIMETASONE
     Dosage: UNK, BID
  9. DESOXIMETASONE [Concomitant]
     Active Substance: DESOXIMETASONE
     Dates: start: 20220915, end: 20220924

REACTIONS (31)
  - Back pain [Recovered/Resolved]
  - COVID-19 [Recovered/Resolved]
  - Eating disorder [Recovered/Resolved]
  - Ear pain [Recovered/Resolved]
  - Facial pain [Recovered/Resolved]
  - Frequent bowel movements [Recovered/Resolved]
  - General physical health deterioration [Recovered/Resolved]
  - Insomnia [Recovered/Resolved]
  - Malaise [Recovered/Resolved]
  - Nasal discharge discolouration [Recovered/Resolved]
  - Pain [Recovered/Resolved]
  - Pain assessment [Recovered/Resolved]
  - Pain in extremity [Recovered/Resolved]
  - Pain in jaw [Recovered/Resolved]
  - Psoriasis [Recovered/Resolved]
  - Sinusitis [Recovered/Resolved]
  - Syncope [Recovered/Resolved]
  - Toothache [Recovered/Resolved]
  - Visual impairment [Recovered/Resolved]
  - Arthralgia [Recovered/Resolved]
  - Angioplasty [Recovered/Resolved]
  - Arthritis [Recovered/Resolved]
  - Nausea [Recovered/Resolved]
  - Drug ineffective [Recovered/Resolved]
  - Gastric haemorrhage [Recovered/Resolved]
  - Injection site bruising [Recovered/Resolved]
  - Suture removal [Recovered/Resolved]
  - Abdominal pain [Recovered/Resolved]
  - Vomiting [Recovered/Resolved]
  - Toe amputation [Recovered/Resolved]
  - Wrong technique in product usage process [Recovered/Resolved]

NARRATIVE: CASE EVENT DATE: 20211015
